FAERS Safety Report 6049347-6 (Version None)
Quarter: 2009Q1

REPORT INFORMATION
  Report Type: 
  Country: None (occurrence: None)
  Receive Date: 20090123
  Receipt Date: 20090116
  Transmission Date: 20090719
  Serious: Yes (Other)
  Sender: FDA-Public Use
  Company Number: US-PFIZER INC-2008094096

PATIENT
  Sex: Female
  Weight: 77.1 kg

DRUGS (9)
  1. NICOTROL [Suspect]
     Indication: SMOKING CESSATION THERAPY
  2. SUCRALFATE [Concomitant]
  3. CHOLESTYRAMINE [Concomitant]
  4. CYCLOBENZAPRINE HCL [Concomitant]
  5. PREMARIN [Concomitant]
  6. METOPROLOL TARTRATE [Concomitant]
  7. ALBUTEROL [Concomitant]
     Route: 055
  8. NITROGLYCERIN [Concomitant]
  9. PREVACID [Concomitant]

REACTIONS (8)
  - CERVIX CARCINOMA [None]
  - CHOKING [None]
  - COUGH [None]
  - DRUG EFFECT INCREASED [None]
  - DRUG INEFFECTIVE [None]
  - DYSGEUSIA [None]
  - NEOPLASM [None]
  - RESPIRATORY FUME INHALATION DISORDER [None]
